FAERS Safety Report 11722425 (Version 8)
Quarter: 2017Q1

REPORT INFORMATION
  Report Type: Spontaneous
  Country: US (occurrence: US)
  Receive Date: 20151111
  Receipt Date: 20170111
  Transmission Date: 20170428
  Serious: Yes (Congenital Anomaly, Other)
  Sender: FDA-Public Use
  Company Number: PHEH2015US022991

PATIENT
  Age: 7 Month
  Sex: Female

DRUGS (5)
  1. ZOFRAN [Suspect]
     Active Substance: ONDANSETRON HYDROCHLORIDE
     Indication: FOETAL EXPOSURE DURING PREGNANCY
     Dosage: MOTHER^S DOSE: 4 MG, UNK
     Route: 064
  2. ONDANSETRON DR REDDY [Suspect]
     Active Substance: ONDANSETRON
     Indication: FOETAL EXPOSURE DURING PREGNANCY
     Dosage: MOTHER^S DOSE: 4 MG, QID
     Route: 064
  3. ZOFRAN ODT [Suspect]
     Active Substance: ONDANSETRON HYDROCHLORIDE
     Indication: FOETAL EXPOSURE DURING PREGNANCY
     Route: 064
  4. ZOFRAN [Suspect]
     Active Substance: ONDANSETRON HYDROCHLORIDE
     Indication: FOETAL EXPOSURE DURING PREGNANCY
     Dosage: MOTHER DOSE: 04 MG, UNK
     Route: 064
  5. ONDANSETRON [Suspect]
     Active Substance: ONDANSETRON
     Indication: FOETAL EXPOSURE DURING PREGNANCY
     Dosage: MOTHER DOSE: 04 MG, QID
     Route: 064

REACTIONS (23)
  - Cleft lip [Unknown]
  - Injury [Unknown]
  - Staphylococcal infection [Unknown]
  - Pain [Unknown]
  - Vulvovaginal erythema [Unknown]
  - Ear pain [Unknown]
  - Congenital anomaly [Unknown]
  - Nose deformity [Unknown]
  - Micturition urgency [Unknown]
  - Upper respiratory tract infection [Unknown]
  - Vaginal infection [Unknown]
  - Sinusitis [Unknown]
  - Cleft palate [Unknown]
  - Cellulitis [Unknown]
  - Anhedonia [Unknown]
  - Oral viral infection [Unknown]
  - Anxiety [Unknown]
  - Otitis media chronic [Unknown]
  - Pneumonia [Unknown]
  - Foetal exposure during pregnancy [Unknown]
  - Emotional distress [Unknown]
  - Decreased appetite [Unknown]
  - Dysuria [Unknown]

NARRATIVE: CASE EVENT DATE: 201210
